FAERS Safety Report 15782586 (Version 1)
Quarter: 2019Q1

REPORT INFORMATION
  Report Type: Spontaneous
  Country: JP (occurrence: JP)
  Receive Date: 20190102
  Receipt Date: 20190102
  Transmission Date: 20190417
  Serious: Yes (Hospitalization)
  Sender: FDA-Public Use
  Company Number: JP-ASSERTIO THERAPEUTICS, INC.-JP-2018DEP001975

PATIENT
  Age: 75 Year
  Sex: Male

DRUGS (2)
  1. GABAPENTIN. [Suspect]
     Active Substance: GABAPENTIN
     Indication: POST-TRAUMATIC EPILEPSY
     Dosage: 600 MG, QD
  2. PHENYTOIN. [Suspect]
     Active Substance: PHENYTOIN
     Indication: POST-TRAUMATIC EPILEPSY
     Dosage: 200 MG, QD

REACTIONS (1)
  - Hypothyroidism [Recovered/Resolved]
